FAERS Safety Report 5163788-0 (Version None)
Quarter: 2006Q4

REPORT INFORMATION
  Report Type: 
  Country: None (occurrence: None)
  Receive Date: 20061124
  Receipt Date: 20061116
  Transmission Date: 20070319
  Serious: Yes (Other)
  Sender: FDA-Public Use
  Company Number: 2006142613

PATIENT
  Age: 68 Year
  Sex: Female
  Weight: 60.3284 kg

DRUGS (3)
  1. NORVASC [Suspect]
     Indication: BLOOD PRESSURE INCREASED
     Dosage: 5 MG (5 MG, 1 IN 1 D), ORAL
     Route: 048
     Dates: start: 20061114, end: 20061115
  2. ATENOLOL [Concomitant]
  3. FUROSEMIDE [Concomitant]

REACTIONS (5)
  - ANHEDONIA [None]
  - DEPRESSION [None]
  - FEELING OF DESPAIR [None]
  - PSYCHIATRIC SYMPTOM [None]
  - SUICIDAL IDEATION [None]
